FAERS Safety Report 7674998-2 (Version None)
Quarter: 2011Q3

REPORT INFORMATION
  Report Type: 
  Country: None (occurrence: None)
  Receive Date: 20110810
  Receipt Date: 20100928
  Transmission Date: 20111222
  Serious: Yes (Hospitalization, Other)
  Sender: FDA-Public Use
  Company Number: US-BAYER-201034847NA

PATIENT
  Age: 42 Year
  Sex: Female
  Weight: 113.83 kg

DRUGS (6)
  1. DROSPIRENONE AND ETHINYL ESTRADIOL [Suspect]
     Indication: DYSFUNCTIONAL UTERINE BLEEDING
     Dosage: UNK
     Dates: start: 20090501
  2. FERROUS SULFATE TAB [Concomitant]
     Indication: ANAEMIA
  3. BENAZEPRIL HYDROCHLORIDE [Concomitant]
     Dosage: 20 MG/24HR, UNK
  4. RUFEN [Concomitant]
     Dosage: 800 MG, UNK
  5. NOVOLOG MIX 70/30 [Concomitant]
     Indication: DIABETES MELLITUS
     Dosage: 30 U, UNK
     Dates: start: 20000101
  6. GLIPIZIDE [Concomitant]
     Indication: DIABETES MELLITUS
     Dosage: 5 MG/24HR, UNK

REACTIONS (10)
  - BRONCHITIS [None]
  - URTICARIA [None]
  - PULMONARY EMBOLISM [None]
  - PULMONARY THROMBOSIS [None]
  - DIZZINESS [None]
  - EXCORIATION [None]
  - SWELLING FACE [None]
  - INJURY [None]
  - DYSPNOEA [None]
  - KIDNEY INFECTION [None]
